FAERS Safety Report 8507700-2 (Version None)
Quarter: 2012Q3

REPORT INFORMATION
  Report Type: 
  Country: None (occurrence: None)
  Receive Date: 20120713
  Receipt Date: 20120702
  Transmission Date: 20120928
  Serious: Yes (Hospitalization)
  Sender: FDA-Public Use
  Company Number: FR-ELI_LILLY_AND_COMPANY-FR201207003295

PATIENT

DRUGS (2)
  1. OXALIPLATIN [Concomitant]
     Indication: BILE DUCT CANCER
     Dosage: 100 MG/M2, OTHER
  2. GEMZAR [Suspect]
     Indication: BILE DUCT CANCER
     Dosage: 1000 MG/M2, OTHER
     Route: 042

REACTIONS (1)
  - CHOLANGITIS [None]
